FAERS Safety Report 4422959-9 (Version None)
Quarter: 2004Q3

REPORT INFORMATION
  Report Type: 
  Country: None (occurrence: None)
  Receive Date: 20040809
  Receipt Date: 20040809
  Transmission Date: 20050211
  Serious: Yes (Hospitalization)
  Sender: FDA-Public Use
  Company Number: None

PATIENT
  Age: 66 Year
  Sex: Male
  Weight: 87.9978 kg

DRUGS (1)
  1. HYDROCHLOROTHIAZIDE [Suspect]
     Indication: HYPERTENSION
     Dosage: 25 MG PO QD
     Route: 048
     Dates: start: 20040311, end: 20040415

REACTIONS (4)
  - BLOOD PRESSURE DIASTOLIC DECREASED [None]
  - DIZZINESS [None]
  - RENAL FAILURE ACUTE [None]
  - SYNCOPE [None]
